FAERS Safety Report 5119671-X (Version None)
Quarter: 2006Q3

REPORT INFORMATION
  Report Type: 
  Country: None (occurrence: None)
  Receive Date: 20060928
  Receipt Date: 20060915
  Transmission Date: 20061208
  Serious: Yes (Hospitalization, Other)
  Sender: FDA-Public Use
  Company Number: 2006112868

PATIENT
  Age: 76 Year
  Sex: Male

DRUGS (11)
  1. LYRICA [Suspect]
     Indication: POLYNEUROPATHY
     Dosage: 150 MG (75 MG,2 IN 1 D)
     Dates: start: 20060101
  2. AVANDIA [Concomitant]
  3. GLUCOVANCE [Concomitant]
  4. FLUOXETINE [Concomitant]
  5. PRIMIDONE [Concomitant]
  6. TRAZODONE HCL [Concomitant]
  7. ZANAFLEX [Concomitant]
  8. BENADRYL [Concomitant]
  9. ASPIRIN [Concomitant]
  10. LORTAB [Concomitant]
  11. FUROSEMIDE [Concomitant]

REACTIONS (8)
  - CARDIAC FAILURE CONGESTIVE [None]
  - CHEST PAIN [None]
  - DRUG TOLERANCE [None]
  - FLUID RETENTION [None]
  - HYPERTENSION [None]
  - OEDEMA [None]
  - PAIN [None]
  - WEIGHT INCREASED [None]
